FAERS Safety Report 4836517-5 (Version None)
Quarter: 2005Q4

REPORT INFORMATION
  Report Type: 
  Country: None (occurrence: None)
  Receive Date: 20051123
  Receipt Date: 20051116
  Transmission Date: 20060501
  Serious: Yes (Other)
  Sender: FDA-Public Use
  Company Number: JP-JPN-A20052764

PATIENT
  Age: 60 Year
  Sex: Male

DRUGS (2)
  1. FLUTIDE [Suspect]
     Indication: ASTHMA
     Route: 055
     Dates: start: 20050506, end: 20050621
  2. ANTIBIOTIC (UNSPECIFIED) [Concomitant]
     Route: 048

REACTIONS (2)
  - DYSPHONIA [None]
  - SENSATION OF FOREIGN BODY [None]
